FAERS Safety Report 11492085 (Version 1)
Quarter: 2015Q3

REPORT INFORMATION
  Report Type: Spontaneous
  Country: US (occurrence: None)
  Receive Date: 20150909
  Receipt Date: 20150909
  Transmission Date: 20151125
  Serious: No
  Sender: FDA-Public Use
  Company Number: None

PATIENT
  Sex: Female

DRUGS (1)
  1. SIMVASTIN [Suspect]
     Active Substance: SIMVASTATIN

REACTIONS (4)
  - Gait disturbance [None]
  - Muscle spasms [None]
  - Muscle atrophy [None]
  - Muscular weakness [None]
